FAERS Safety Report 17388823 (Version 1)
Quarter: 2020Q1

REPORT INFORMATION
  Report Type: Spontaneous
  Country: US (occurrence: US)
  Receive Date: 20200206
  Receipt Date: 20200206
  Transmission Date: 20200409
  Serious: No
  Sender: FDA-Public Use
  Company Number: US-GLAXOSMITHKLINE-US2020AMR019721

PATIENT

DRUGS (1)
  1. INCRUSE ELLIPTA [Suspect]
     Active Substance: UMECLIDINIUM BROMIDE
     Indication: PRODUCT USED FOR UNKNOWN INDICATION
     Dosage: UNK
     Route: 065

REACTIONS (8)
  - Choking sensation [Unknown]
  - Oral discomfort [Unknown]
  - Throat irritation [Unknown]
  - Condition aggravated [Unknown]
  - Product taste abnormal [Unknown]
  - Drug hypersensitivity [Unknown]
  - Cough [Unknown]
  - Retching [Unknown]
